FAERS Safety Report 5674024-0 (Version None)
Quarter: 2008Q1

REPORT INFORMATION
  Report Type: 
  Country: None (occurrence: None)
  Receive Date: 20080320
  Receipt Date: 20080304
  Transmission Date: 20080703
  Serious: No
  Sender: FDA-Public Use
  Company Number: US-BAYER-200816056NA

PATIENT
  Age: 39 Year
  Sex: Female
  Weight: 111 kg

DRUGS (1)
  1. MAGNEVIST SINGLE-USE VIAL [Suspect]
     Indication: NUCLEAR MAGNETIC RESONANCE IMAGING BRAIN
     Route: 042
     Dates: start: 20080303, end: 20080303

REACTIONS (3)
  - INJECTION SITE CELLULITIS [None]
  - INJECTION SITE PHLEBITIS [None]
  - VESSEL PUNCTURE SITE PAIN [None]
